FAERS Safety Report 6677219-2 (Version None)
Quarter: 2010Q2

REPORT INFORMATION
  Report Type: 
  Country: None (occurrence: None)
  Receive Date: 20100408
  Receipt Date: 20100401
  Transmission Date: 20101027
  Serious: Yes (Other)
  Sender: FDA-Public Use
  Company Number: URSO-2010-028

PATIENT
  Age: 42 Year
  Sex: Female

DRUGS (9)
  1. URSODEOXYCHOLIC ACID [Suspect]
     Dosage: 300MF TID
  2. VENLAFAXINE HCL [Suspect]
     Dosage: 75-225MG
  3. FUROSEMIDE [Concomitant]
  4. METOPROLOL TARTRATE [Concomitant]
  5. SIMVASTATIN [Concomitant]
  6. ZOPICLONE [Concomitant]
  7. VALSARTAN [Concomitant]
  8. ROSIGLITAZONE [Concomitant]
  9. PANTOPRAZOLE [Concomitant]

REACTIONS (7)
  - AGITATION [None]
  - ANTIPSYCHOTIC DRUG LEVEL INCREASED [None]
  - DYSPNOEA [None]
  - FATIGUE [None]
  - PARAESTHESIA [None]
  - TACHYCARDIA [None]
  - THERAPEUTIC AGENT TOXICITY [None]
